FAERS Safety Report 7314846-3 (Version None)
Quarter: 2011Q1

REPORT INFORMATION
  Report Type: 
  Country: None (occurrence: None)
  Receive Date: 20110225
  Receipt Date: 20100225
  Transmission Date: 20110831
  Serious: No
  Sender: FDA-Public Use
  Company Number: US-MYLANLABS-2009S1021983

PATIENT
  Age: 16 Year
  Sex: Female
  Weight: 55.79 kg

DRUGS (2)
  1. CLARAVIS [Suspect]
     Indication: ACNE
     Route: 048
     Dates: start: 20091120, end: 20091216
  2. AMNESTEEM [Suspect]
     Indication: ACNE
     Route: 048
     Dates: start: 20091120, end: 20091216

REACTIONS (2)
  - DEPRESSED MOOD [None]
  - DEPRESSION [None]
